FAERS Safety Report 25424208 (Version 4)
Quarter: 2025Q3

REPORT INFORMATION
  Report Type: Spontaneous
  Country: EU (occurrence: EU)
  Receive Date: 20250611
  Receipt Date: 20250730
  Transmission Date: 20251020
  Serious: Yes (Hospitalization, Other)
  Sender: SANOFI AVENTIS
  Company Number: EU-SANOFI-02548679

PATIENT
  Age: 66 Year
  Sex: Female

DRUGS (10)
  1. DUPIXENT [Suspect]
     Active Substance: DUPILUMAB
     Indication: Asthma
     Dates: start: 20250410, end: 20250410
  2. DUPIXENT [Suspect]
     Active Substance: DUPILUMAB
     Dosage: 300 MG, QOW
     Dates: start: 20250424, end: 20250515
  3. BACTRIM [Concomitant]
     Active Substance: SULFAMETHOXAZOLE\TRIMETHOPRIM
     Dosage: 800 MG + 160 MG, BID
     Route: 048
     Dates: start: 20250611, end: 20250616
  4. PANTOPRAZOLE [Concomitant]
     Active Substance: PANTOPRAZOLE
     Dosage: 40 MG, QD
     Route: 048
     Dates: start: 20250606
  5. PREDNISONE [Concomitant]
     Active Substance: PREDNISONE
     Dosage: DOSE: 37.5 (1 TAB + 1/2) MG AT: 08:00AM
     Dates: start: 20250611, end: 20250615
  6. PREDNISONE [Concomitant]
     Active Substance: PREDNISONE
     Dosage: 1 25 MG TAB QD
  7. PREDNISONE [Concomitant]
     Active Substance: PREDNISONE
     Dosage: 1/2 TAB QD FOR 4 DAYS
  8. PREDNISONE [Concomitant]
     Active Substance: PREDNISONE
     Dosage: THEN 1/4 FOR 4 DAYS
  9. BECLOMETHASONE DIPROPIONATE\FORMOTEROL FUMARATE\GLYCOPYRROLATE [Concomitant]
     Active Substance: BECLOMETHASONE DIPROPIONATE\FORMOTEROL FUMARATE\GLYCOPYRROLATE
     Dosage: 2 PUFFS; AT: 08:00AM8:00PM
     Dates: start: 20250611
  10. OMEPRAZOLE [Concomitant]
     Active Substance: OMEPRAZOLE

REACTIONS (9)
  - Pyrexia [Unknown]
  - Eosinophilic granulomatosis with polyangiitis [Unknown]
  - Condition aggravated [Unknown]
  - Arthralgia [Unknown]
  - Asthma [Unknown]
  - Eosinophilia [Unknown]
  - Nasal septum deviation [Unknown]
  - Nasal polyps [Unknown]
  - Myalgia [Recovered/Resolved]

NARRATIVE: CASE EVENT DATE: 20250101
